APPROVED DRUG PRODUCT: MYDAYIS
Active Ingredient: AMPHETAMINE ASPARTATE; AMPHETAMINE SULFATE; DEXTROAMPHETAMINE SACCHARATE; DEXTROAMPHETAMINE SULFATE
Strength: 3.125MG;3.125MG;3.125MG;3.125MG
Dosage Form/Route: CAPSULE, EXTENDED RELEASE;ORAL
Application: N022063 | Product #001 | TE Code: AB2
Applicant: TAKEDA PHARMACEUTICALS USA INC
Approved: Jun 20, 2017 | RLD: Yes | RS: No | Type: RX

PATENTS:
Patent 9173857 | Expires: May 12, 2026
Patent 8846100 | Expires: Aug 24, 2029